FAERS Safety Report 7212077-9 (Version None)
Quarter: 2010Q4

REPORT INFORMATION
  Report Type: 
  Country: None (occurrence: None)
  Receive Date: 20101228
  Receipt Date: 20101215
  Transmission Date: 20110411
  Serious: Yes (Other)
  Sender: FDA-Public Use
  Company Number: 005398

PATIENT
  Age: 34 Year
  Sex: Female

DRUGS (8)
  1. KEPPRA [Suspect]
     Indication: POST-TRAUMATIC EPILEPSY
     Dosage: 1000 MG QD ORAL
     Route: 048
     Dates: start: 20080601
  2. KEPPRA [Suspect]
     Indication: EPILEPSY
  3. ASPIRIN [Concomitant]
  4. VITAMINS WITH MINERALS [Concomitant]
  5. FISH OIL [Concomitant]
  6. COQ10 [Concomitant]
  7. FOLIC ACID [Concomitant]
  8. CRINONE [Concomitant]

REACTIONS (4)
  - ABORTION SPONTANEOUS [None]
  - DRUG EXPOSURE DURING PREGNANCY [None]
  - PREGNANCY [None]
  - VAGINAL HAEMORRHAGE [None]
